FAERS Safety Report 9775125 (Version 1)
Quarter: 2013Q4

REPORT INFORMATION
  Report Type: Spontaneous
  Country: US (occurrence: None)
  Receive Date: 20131219
  Receipt Date: 20131219
  Transmission Date: 20140711
  Serious: Yes (Life-Threatening, Other)
  Sender: FDA-Public Use
  Company Number: None

PATIENT
  Age: 70 Year
  Sex: Male

DRUGS (1)
  1. ACETAMINOPHEN\OXYCODONE HYDROCHLORIDE [Suspect]
     Indication: SUPPLEMENTATION THERAPY
     Dosage: 5/DAY TAKEN BY MOUTH
     Route: 048

REACTIONS (8)
  - Product commingling [None]
  - Gait disturbance [None]
  - Drug ineffective [None]
  - Motor dysfunction [None]
  - Tremor [None]
  - Pain [None]
  - Mobility decreased [None]
  - Product substitution issue [None]
